FAERS Safety Report 13880665 (Version 1)
Quarter: 2017Q3

REPORT INFORMATION
  Report Type: Spontaneous
  Country: US (occurrence: None)
  Receive Date: 20170815
  Receipt Date: 20170815
  Transmission Date: 20171127
  Serious: No
  Sender: FDA-Public Use
  Company Number: None

PATIENT
  Sex: Female
  Weight: 104.33 kg

DRUGS (1)
  1. METHOTREXATE UNKNOWN GENERIC [Suspect]
     Active Substance: METHOTREXATE
     Indication: PSORIASIS

REACTIONS (2)
  - Therapy change [None]
  - Musculoskeletal disorder [None]
